FAERS Safety Report 19630647 (Version 1)
Quarter: 2021Q3

REPORT INFORMATION
  Report Type: Spontaneous
  Country: GB (occurrence: GB)
  Receive Date: 20210729
  Receipt Date: 20210729
  Transmission Date: 20211014
  Serious: Yes (Disabling, Other)
  Sender: FDA-Public Use
  Company Number: GB-ACCORD-233478

PATIENT
  Age: 27 Year
  Sex: Male
  Weight: 85 kg

DRUGS (1)
  1. FINASTERIDE. [Suspect]
     Active Substance: FINASTERIDE
     Indication: ALOPECIA
     Dosage: 1MG DAILY
     Route: 048
     Dates: start: 20200401, end: 20200414

REACTIONS (11)
  - Orgasmic sensation decreased [Recovering/Resolving]
  - Ejaculation disorder [Not Recovered/Not Resolved]
  - Feeling abnormal [Recovered/Resolved]
  - Erectile dysfunction [Not Recovered/Not Resolved]
  - Penis disorder [Unknown]
  - Testicular atrophy [Not Recovered/Not Resolved]
  - Ejaculation failure [Not Recovered/Not Resolved]
  - Electric shock sensation [Recovering/Resolving]
  - Scrotum erosion [Not Recovered/Not Resolved]
  - Confusional state [Recovered/Resolved]
  - Intellectual disability [Recovered/Resolved]

NARRATIVE: CASE EVENT DATE: 20200413
